FAERS Safety Report 14371244 (Version 5)
Quarter: 2018Q2

REPORT INFORMATION
  Report Type: Spontaneous
  Country: US (occurrence: US)
  Receive Date: 20180110
  Receipt Date: 20180625
  Transmission Date: 20180711
  Serious: Yes (Death, Other)
  Sender: FDA-Public Use
  Company Number: US-PFIZER INC-2018010113

PATIENT
  Age: 56 Year
  Sex: Female
  Weight: 95 kg

DRUGS (3)
  1. IBRANCE [Suspect]
     Active Substance: PALBOCICLIB
     Dosage: 100 MG, CYCLIC (DAY 1-21 Q 28 DAYS)
     Route: 048
     Dates: start: 201709
  2. IBRANCE [Suspect]
     Active Substance: PALBOCICLIB
     Indication: BREAST CANCER METASTATIC
     Dosage: 100 MG, CYCLIC (DAY 1-21 Q 28 DAYS)
     Route: 048
     Dates: start: 201709, end: 201712
  3. IBRANCE [Suspect]
     Active Substance: PALBOCICLIB
     Dosage: 100 MG, CYCLIC (D1-21 Q 28 DAYS)
     Route: 048
     Dates: start: 201801

REACTIONS (18)
  - Rash [Unknown]
  - Arthralgia [Unknown]
  - Decreased activity [Unknown]
  - Neoplasm progression [Unknown]
  - Nausea [Unknown]
  - Tumour marker increased [Unknown]
  - Headache [Unknown]
  - Abdominal pain [Unknown]
  - Diarrhoea [Unknown]
  - Musculoskeletal pain [Unknown]
  - Dyspepsia [Unknown]
  - Death [Fatal]
  - Bone pain [Unknown]
  - Arthritis [Unknown]
  - Feeling abnormal [Unknown]
  - Decreased appetite [Unknown]
  - Fatigue [Unknown]
  - Vaginal haemorrhage [Unknown]

NARRATIVE: CASE EVENT DATE: 201712
